FAERS Safety Report 8840450 (Version 1)
Quarter: 2012Q4

REPORT INFORMATION
  Report Type: 
  Country: US (occurrence: US)
  Receive Date: 20121015
  Receipt Date: 20121015
  Transmission Date: 20130627
  Serious: Yes (Other)
  Sender: FDA-Public Use
  Company Number: US-ROCHE-1140511

PATIENT
  Sex: Male

DRUGS (5)
  1. PROTROPIN [Suspect]
     Indication: HYPOPITUITARISM
     Route: 058
  2. PROTROPIN [Suspect]
     Route: 058
  3. SYNTHROID [Concomitant]
     Route: 065
  4. TESTOSTERONE [Concomitant]
     Route: 065
     Dates: start: 200105
  5. TESTOSTERONE [Concomitant]
     Route: 065
     Dates: start: 200107

REACTIONS (5)
  - Autism [Unknown]
  - Blindness unilateral [Unknown]
  - Dry skin [Unknown]
  - Blood glucose decreased [Unknown]
  - Pollakiuria [Unknown]
